FAERS Safety Report 9185139 (Version 1)
Quarter: 2013Q1

REPORT INFORMATION
  Report Type: Spontaneous
  Country: FR (occurrence: FR)
  Receive Date: 20130325
  Receipt Date: 20130325
  Transmission Date: 20140127
  Serious: Yes (Death, Disabling)
  Sender: FDA-Public Use
  Company Number: FR-ABBOTT-13P-056-1064986-00

PATIENT
  Age: 51 None
  Sex: Female

DRUGS (13)
  1. NORVIR [Suspect]
     Indication: HIV INFECTION
     Route: 048
     Dates: start: 20070712, end: 20120503
  2. ISENTRESS [Suspect]
     Indication: HIV INFECTION
     Route: 048
     Dates: start: 20120503, end: 20120710
  3. KIVEXA [Suspect]
     Indication: HIV INFECTION
     Dosage: 600MG/300MG
     Route: 048
     Dates: start: 20080708, end: 20120710
  4. PREZISTA [Suspect]
     Indication: HIV INFECTION
     Route: 048
     Dates: start: 20100916, end: 20120503
  5. METHADONE [Concomitant]
     Indication: PRODUCT USED FOR UNKNOWN INDICATION
  6. HYDROCORTISONE [Concomitant]
     Indication: ADRENAL INSUFFICIENCY
  7. AVLOCARDYL [Concomitant]
     Indication: PRODUCT USED FOR UNKNOWN INDICATION
  8. INEXIUM [Concomitant]
     Indication: PRODUCT USED FOR UNKNOWN INDICATION
  9. STILNOX [Concomitant]
     Indication: PRODUCT USED FOR UNKNOWN INDICATION
  10. CACIT VITAMINE D3 [Concomitant]
     Indication: PRODUCT USED FOR UNKNOWN INDICATION
  11. SEREVENT [Concomitant]
     Indication: PRODUCT USED FOR UNKNOWN INDICATION
  12. SPIRIVA [Concomitant]
     Indication: PRODUCT USED FOR UNKNOWN INDICATION
  13. TRAMADOL [Concomitant]
     Indication: PRODUCT USED FOR UNKNOWN INDICATION
     Dates: start: 20100906

REACTIONS (7)
  - Death [Fatal]
  - Neuropathy peripheral [Unknown]
  - Pain in extremity [Unknown]
  - Sensory loss [Unknown]
  - Foot deformity [Unknown]
  - Areflexia [Unknown]
  - Hepatitis C [Unknown]
